FAERS Safety Report 5758358-7 (Version None)
Quarter: 2008Q2

REPORT INFORMATION
  Report Type: 
  Country: None (occurrence: None)
  Receive Date: 20080604
  Receipt Date: 20080526
  Transmission Date: 20081010
  Serious: Yes (Other)
  Sender: FDA-Public Use
  Company Number: DE-JNJFOC-20080501916

PATIENT
  Age: 79 Year
  Sex: Female
  Weight: 70 kg

DRUGS (9)
  1. REMICADE [Suspect]
     Route: 042
     Dates: start: 20010101
  2. REMICADE [Suspect]
     Indication: RHEUMATOID ARTHRITIS
     Route: 042
     Dates: start: 20010101
  3. METHOTREXATE [Concomitant]
  4. PREDNISOLONE [Concomitant]
     Route: 048
  5. PROTELOS [Concomitant]
     Route: 048
  6. TILIDIN/NALOXON [Concomitant]
  7. FOLATE [Concomitant]
  8. FOSAMAX [Concomitant]
     Indication: OSTEOPOROSIS
  9. DEXAMETHASONE TAB [Concomitant]

REACTIONS (1)
  - FRACTURE [None]
